FAERS Safety Report 14447340 (Version 1)
Quarter: 2018Q1

REPORT INFORMATION
  Report Type: Spontaneous
  Country: RO (occurrence: RO)
  Receive Date: 20180126
  Receipt Date: 20180126
  Transmission Date: 20180509
  Serious: Yes (Death)
  Sender: FDA-Public Use
  Company Number: RO-HERITAGE PHARMACEUTICALS-2018HTG00010

PATIENT
  Age: 33 Year
  Sex: Male

DRUGS (1)
  1. VENLAFAXINE HYDROCHLORIDE. [Suspect]
     Active Substance: VENLAFAXINE HYDROCHLORIDE
     Route: 065

REACTIONS (4)
  - Left ventricular dysfunction [Fatal]
  - Toxicity to various agents [Fatal]
  - Myocardial infarction [Fatal]
  - Overdose [Fatal]
